FAERS Safety Report 4372647-2 (Version None)
Quarter: 2004Q2

REPORT INFORMATION
  Report Type: 
  Country: None (occurrence: None)
  Receive Date: 20040526
  Receipt Date: 20040510
  Transmission Date: 20050107
  Serious: Yes (Disabling)
  Sender: FDA-Public Use
  Company Number: M0919-2004

PATIENT
  Age: 4 Year

DRUGS (3)
  1. FOLLISTIM [Suspect]
     Dates: start: 20000101
  2. CHORIONIC GONADOTROPIN [Suspect]
     Dates: start: 20000101
  3. INSULIN [Suspect]
     Dates: start: 20000101

REACTIONS (2)
  - AUTISM [None]
  - DRUG EXPOSURE DURING PREGNANCY [None]
